FAERS Safety Report 6278787-5 (Version None)
Quarter: 2009Q3

REPORT INFORMATION
  Report Type: 
  Country: None (occurrence: None)
  Receive Date: 20090723
  Receipt Date: 20090717
  Transmission Date: 20100115
  Serious: Yes (Hospitalization)
  Sender: FDA-Public Use
  Company Number: US-BIOGENIDEC-2008BI031928

PATIENT
  Age: 54 Year
  Sex: Female

DRUGS (2)
  1. TYSABRI [Suspect]
     Indication: CROHN'S DISEASE
     Route: 042
     Dates: start: 20080919, end: 20081101
  2. TYSABRI [Suspect]
     Route: 042
     Dates: start: 20080919, end: 20081101

REACTIONS (3)
  - ABSCESS RUPTURE [None]
  - DUODENAL OBSTRUCTION [None]
  - POST PROCEDURAL COMPLICATION [None]
